FAERS Safety Report 7911104-0 (Version None)
Quarter: 2011Q4

REPORT INFORMATION
  Report Type: 
  Country: None (occurrence: None)
  Receive Date: 20111114
  Receipt Date: 20111102
  Transmission Date: 20120403
  Serious: Yes (Other)
  Sender: FDA-Public Use
  Company Number: SK-RANBAXY-2011R1-50218

PATIENT
  Age: 73 Year
  Sex: Male

DRUGS (2)
  1. DICLOFENAC SODIUM [Suspect]
     Indication: ANKYLOSING SPONDYLITIS
     Dosage: UNK
     Route: 065
  2. IBUPROFEN [Suspect]
     Indication: ANKYLOSING SPONDYLITIS
     Dosage: UNK
     Route: 065

REACTIONS (1)
  - GASTROINTESTINAL EROSION [None]
